FAERS Safety Report 24625916 (Version 2)
Quarter: 2024Q4

REPORT INFORMATION
  Report Type: Spontaneous
  Country: US (occurrence: US)
  Receive Date: 20241115
  Receipt Date: 20241205
  Transmission Date: 20250114
  Serious: No
  Sender: PFIZER
  Company Number: US-PFIZER INC-202400253819

PATIENT
  Age: 67 Year
  Sex: Female

DRUGS (4)
  1. IBRANCE [Suspect]
     Active Substance: PALBOCICLIB
     Indication: Breast cancer metastatic
     Dosage: FOR 21 DAYS
  2. IBRANCE [Suspect]
     Active Substance: PALBOCICLIB
     Dosage: 1 TABLET DAILY FOR DAYS 1-14 WITH 7 DAYS OFF
     Route: 048
     Dates: start: 20240826, end: 20241113
  3. XANAX [Concomitant]
     Active Substance: ALPRAZOLAM
     Indication: Anxiety
     Dosage: NIGHTLY
     Route: 048
     Dates: start: 20240812
  4. TAPAZOLE [Concomitant]
     Active Substance: METHIMAZOLE
     Dosage: IN THE MORNING
     Route: 048

REACTIONS (1)
  - Pleural effusion [Unknown]
